FAERS Safety Report 14641843 (Version 3)
Quarter: 2018Q2

REPORT INFORMATION
  Report Type: Spontaneous
  Country: SE (occurrence: SE)
  Receive Date: 20180315
  Receipt Date: 20180409
  Transmission Date: 20180711
  Serious: Yes (Hospitalization)
  Sender: FDA-Public Use
  Company Number: SE-OTSUKA-2018_005745

PATIENT
  Age: 14 Year
  Sex: Female

DRUGS (1)
  1. ABILIFY [Suspect]
     Active Substance: ARIPIPRAZOLE
     Indication: PRODUCT USED FOR UNKNOWN INDICATION
     Dosage: DOSAGE 2 TO 3 MG
     Route: 048
     Dates: start: 20170628, end: 20171212

REACTIONS (3)
  - Oropharyngeal spasm [Recovered/Resolved]
  - Oropharyngeal pain [Recovered/Resolved]
  - Chest pain [Recovered/Resolved]
